FAERS Safety Report 9547033 (Version 1)
Quarter: 2013Q3

REPORT INFORMATION
  Report Type: Spontaneous
  Country: US (occurrence: None)
  Receive Date: 20130920
  Receipt Date: 20130920
  Transmission Date: 20140515
  Serious: Yes (Life-Threatening)
  Sender: FDA-Public Use
  Company Number: 001598707A

PATIENT
  Age: 29 Year
  Sex: Female

DRUGS (15)
  1. PROACTIV+ SKIN SMOOTHING EXFOLIATOR [Suspect]
     Indication: ACNE
     Dosage: BID - Q3 DAYS DERMAL
     Dates: start: 20130209, end: 20130328
  2. PROACTIV+ PORE TARGETING TREATMENT [Suspect]
     Indication: ACNE
     Dosage: BID - Q3 DAYS DERMAL
     Dates: start: 20130209, end: 20130328
  3. PROACTIV+ COMPLEXION PERFECTING HYDRATOR [Suspect]
     Indication: ACNE
     Dosage: BID- Q3 DAYS DERMAL
     Dates: start: 20130209, end: 20130328
  4. PROACTIV+ MARK FADING PADS [Suspect]
     Indication: ACNE
     Dosage: BID- Q3 DAYS DERMAL
     Dates: start: 20130209, end: 20130328
  5. PROACTIV+ SKIN PURIFYING MASK [Suspect]
     Indication: ACNE
     Dosage: BID - Q3 DAYS DERMAL
     Dates: start: 20130209, end: 20130328
  6. TRILEPTAL [Concomitant]
  7. TRAZODONE [Concomitant]
  8. KLONOPIN [Concomitant]
  9. WATER PILL [Concomitant]
  10. PRILOSEC [Concomitant]
  11. TUMS [Concomitant]
  12. VITAMIN D [Concomitant]
  13. VITAMIN B12 [Concomitant]
  14. OMEGA 3 [Concomitant]
  15. BIOTIN [Concomitant]

REACTIONS (6)
  - Hypersensitivity [None]
  - Dry skin [None]
  - Pruritus [None]
  - Urticaria [None]
  - Swelling face [None]
  - Dyspnoea [None]
